FAERS Safety Report 7563676-6 (Version None)
Quarter: 2011Q2

REPORT INFORMATION
  Report Type: 
  Country: None (occurrence: None)
  Receive Date: 20110615
  Receipt Date: 20110606
  Transmission Date: 20111010
  Serious: Yes (Life-Threatening, Hospitalization)
  Sender: FDA-Public Use
  Company Number: 1000021541

PATIENT
  Age: 66 Year
  Sex: Female

DRUGS (7)
  1. ROACTEMRA (TOCILIZUMAB) (SOLUTION) (TOCILIZUMAB) [Concomitant]
  2. KESTIN (EBASTINE) (TABLETS) (EBASTINE) [Concomitant]
  3. CORTANCYL (PREDNISONE) (TABLETS) (PREDNISONE) [Concomitant]
  4. ESCITALOPRAM [Suspect]
     Indication: DEPRESSION
     Dosage: 20 MG (20 MG,1 IN 1 D),ORAL
     Route: 048
  5. METHOTREXATE [Concomitant]
  6. ADARTREL (ROPINIROLE HYDROCHLORIDE) (TABLETS) (ROPINIROLE HYDROCHLORID [Concomitant]
  7. BONVIVA (IBANDRONIC ACID) (TABLETS) (IBANDRONIC ACID) [Concomitant]

REACTIONS (3)
  - FALL [None]
  - HEAD INJURY [None]
  - SUBDURAL HAEMATOMA [None]
